FAERS Safety Report 4982402-8 (Version None)
Quarter: 2006Q2

REPORT INFORMATION
  Report Type: 
  Country: None (occurrence: None)
  Receive Date: 20060419
  Receipt Date: 20060412
  Transmission Date: 20061013
  Serious: Yes (Hospitalization, Other)
  Sender: FDA-Public Use
  Company Number: 2006BI001205

PATIENT
  Age: 50 Year
  Sex: Female

DRUGS (2)
  1. AVONEX [Suspect]
     Indication: MULTIPLE SCLEROSIS
     Dosage: 30 UG, QW, IM
     Route: 030
     Dates: start: 19980825, end: 20030101
  2. AVONEX [Suspect]
     Indication: MULTIPLE SCLEROSIS
     Dosage: 30 UG, QW, IM
     Route: 030
     Dates: start: 20030101

REACTIONS (5)
  - BALANCE DISORDER [None]
  - DIFFICULTY IN WALKING [None]
  - HYPERTENSION [None]
  - HYPOKALAEMIA [None]
  - TRANSIENT ISCHAEMIC ATTACK [None]
